FAERS Safety Report 25072714 (Version 1)
Quarter: 2025Q1

REPORT INFORMATION
  Report Type: Spontaneous
  Country: IT (occurrence: None)
  Receive Date: 20250313
  Receipt Date: 20250313
  Transmission Date: 20250409
  Serious: Yes (Hospitalization, Other)
  Sender: ACS DOBFAR
  Company Number: IT-ACS-20250144

PATIENT
  Age: 40 Year
  Sex: Female

DRUGS (1)
  1. CEFUROXIME [Suspect]
     Active Substance: CEFUROXIME
     Route: 031

REACTIONS (2)
  - Retinopathy [Not Recovered/Not Resolved]
  - Off label use [Unknown]
